FAERS Safety Report 7579842-X (Version None)
Quarter: 2011Q2

REPORT INFORMATION
  Report Type: 
  Country: None (occurrence: None)
  Receive Date: 20110629
  Receipt Date: 20110616
  Transmission Date: 20111010
  Serious: Yes (Hospitalization, Other)
  Sender: FDA-Public Use
  Company Number: US-ELI_LILLY_AND_COMPANY-US201106004657

PATIENT
  Sex: Female

DRUGS (12)
  1. CLONIDINE [Concomitant]
     Dosage: 0.1 MG, BID
  2. MULTI-VITAMIN [Concomitant]
     Dosage: UNK, QD
  3. TYLENOL                                 /SCH/ [Concomitant]
     Dosage: 500 MG, PRN
  4. ADVAIR DISKUS 100/50 [Concomitant]
     Dosage: UNK, BID
     Route: 055
  5. DILTIAZEM [Concomitant]
     Dosage: 360 MG, QD
  6. MAXAIR [Concomitant]
     Dosage: 200 UG, PRN
  7. ASPIRIN [Concomitant]
     Dosage: 81 MG, QD
  8. LISINOPRIL [Concomitant]
     Dosage: 10 MG, QD
  9. SPIRIVA [Concomitant]
     Dosage: 18 UG, QD
     Route: 055
  10. CITRACAL-D [Concomitant]
     Dosage: 600 MG, BID
  11. ADCIRCA [Suspect]
     Indication: PULMONARY HYPERTENSION
     Dosage: 40 MG, QD
     Dates: start: 20100801
  12. OMEPRAZOLE [Concomitant]
     Dosage: 20 MG, QD

REACTIONS (3)
  - LUNG NEOPLASM MALIGNANT [None]
  - PNEUMONIA [None]
  - RENAL FAILURE [None]
